FAERS Safety Report 8112280-X (Version None)
Quarter: 2012Q1

REPORT INFORMATION
  Report Type: 
  Country: None (occurrence: None)
  Receive Date: 20120203
  Receipt Date: 20120203
  Transmission Date: 20120608
  Serious: No
  Sender: FDA-Public Use
  Company Number: None

PATIENT
  Age: 36 Year
  Sex: Female
  Weight: 68.038 kg

DRUGS (1)
  1. AVELOX [Suspect]

REACTIONS (12)
  - PALPITATIONS [None]
  - DIZZINESS [None]
  - TENDON PAIN [None]
  - TENDON INJURY [None]
  - MOBILITY DECREASED [None]
  - ABASIA [None]
  - ARTHRALGIA [None]
  - NERVOUS SYSTEM DISORDER [None]
  - MALAISE [None]
  - DISABILITY [None]
  - DYSSTASIA [None]
  - CHILLS [None]
